FAERS Safety Report 9226842 (Version 1)
Quarter: 2013Q2

REPORT INFORMATION
  Report Type: Report from Study
  Country: CA (occurrence: CA)
  Receive Date: 20130412
  Receipt Date: 20130412
  Transmission Date: 20140414
  Serious: Yes (Other)
  Sender: FDA-Public Use
  Company Number: CA-JNJFOC-20130403249

PATIENT
  Age: 51 Year
  Sex: Female
  Weight: 61.8 kg

DRUGS (5)
  1. REMICADE [Suspect]
     Indication: RHEUMATOID ARTHRITIS
     Dosage: 93RD INFUSION
     Route: 042
     Dates: start: 20130403
  2. REMICADE [Suspect]
     Indication: RHEUMATOID ARTHRITIS
     Route: 042
     Dates: start: 2001
  3. CELEBREX [Concomitant]
     Route: 065
  4. TYLENOL ARTHRITIS [Concomitant]
     Route: 065
  5. FOLIC ACID [Concomitant]
     Route: 065

REACTIONS (1)
  - Breast cancer [Not Recovered/Not Resolved]
